FAERS Safety Report 8407066-2 (Version None)
Quarter: 2012Q2

REPORT INFORMATION
  Report Type: 
  Country: None (occurrence: None)
  Receive Date: 20120604
  Receipt Date: 20120531
  Transmission Date: 20120825
  Serious: Yes (Other)
  Sender: FDA-Public Use
  Company Number: PHFR2012GB002942

PATIENT
  Sex: Female
  Weight: 82 kg

DRUGS (2)
  1. ONBREZ [Suspect]
     Indication: CHRONIC OBSTRUCTIVE PULMONARY DISEASE
     Dosage: 150 UG, UNK
     Dates: start: 20120202, end: 20120213
  2. AMOXICILLIN [Suspect]
     Indication: LOWER RESPIRATORY TRACT INFECTION
     Dosage: 1500 MG, UNK
     Route: 048
     Dates: start: 20120202, end: 20120209

REACTIONS (7)
  - MECHANICAL URTICARIA [None]
  - RASH [None]
  - URTICARIA PRESSURE [None]
  - OEDEMA PERIPHERAL [None]
  - ERYTHEMA [None]
  - JOINT SWELLING [None]
  - HYPERSENSITIVITY [None]
